FAERS Safety Report 9925943 (Version 1)
Quarter: 2014Q1

REPORT INFORMATION
  Report Type: Spontaneous
  Country: US (occurrence: US)
  Receive Date: 20140226
  Receipt Date: 20140226
  Transmission Date: 20141002
  Serious: No
  Sender: FDA-Public Use
  Company Number: US-BRACCO-009057

PATIENT
  Age: 90 Year
  Sex: Female
  Weight: 56 kg

DRUGS (4)
  1. SIMVASTATIN [Concomitant]
  2. ATENOLOL [Concomitant]
  3. LEVOTHYROXINE [Concomitant]
  4. ISOVUE 300 [Suspect]
     Indication: VERTEBROPLASTY
     Route: 058
     Dates: start: 20130110, end: 20130110

REACTIONS (2)
  - Wrong drug administered [Recovered/Resolved]
  - Injection site erythema [Recovered/Resolved]
